FAERS Safety Report 12298592 (Version 1)
Quarter: 2016Q2

REPORT INFORMATION
  Report Type: Report from Study
  Country: DE (occurrence: DE)
  Receive Date: 20160425
  Receipt Date: 20160425
  Transmission Date: 20160815
  Serious: Yes (Hospitalization)
  Sender: FDA-Public Use
  Company Number: DE-ROCHE-1746418

PATIENT
  Age: 84 Year
  Sex: Female
  Weight: 77.09 kg

DRUGS (4)
  1. TORASEMID [Concomitant]
     Active Substance: TORSEMIDE
     Route: 065
     Dates: start: 201301
  2. CANDESARTAN COMP. [Concomitant]
     Route: 065
     Dates: start: 201408
  3. SIMVASTATIN. [Concomitant]
     Active Substance: SIMVASTATIN
  4. RANIBIZUMAB [Suspect]
     Active Substance: RANIBIZUMAB
     Indication: NEOVASCULAR AGE-RELATED MACULAR DEGENERATION
     Dosage: PRN
     Route: 050
     Dates: start: 20150420

REACTIONS (1)
  - Brain stem stroke [Recovering/Resolving]

NARRATIVE: CASE EVENT DATE: 20160405
